FAERS Safety Report 23672548 (Version 11)
Quarter: 2024Q4

REPORT INFORMATION
  Report Type: Spontaneous
  Country: US (occurrence: US)
  Receive Date: 20240326
  Receipt Date: 20241212
  Transmission Date: 20250115
  Serious: No
  Sender: PFIZER
  Company Number: US-PFIZER INC-202400061651

PATIENT
  Age: 11 Year
  Sex: Female

DRUGS (3)
  1. GENOTROPIN [Suspect]
     Active Substance: SOMATROPIN
     Dosage: 0.4MG ALTERNATING WITH 0.6MG FOR THE FIRST TWO WEEKS
  2. GENOTROPIN [Suspect]
     Active Substance: SOMATROPIN
     Dosage: 0.4MG ALTERNATING WITH 0.6MG FOR THE FIRST TWO WEEKS
  3. GENOTROPIN [Suspect]
     Active Substance: SOMATROPIN
     Dosage: 1 MG, 7 DAYS PER WEEK
     Dates: start: 20240310

REACTIONS (4)
  - Product preparation issue [Unknown]
  - Drug dose omission by device [Unknown]
  - Device material opacification [Unknown]
  - Device leakage [Unknown]

NARRATIVE: CASE EVENT DATE: 20240402
